FAERS Safety Report 4654957-4 (Version None)
Quarter: 2005Q2

REPORT INFORMATION
  Report Type: 
  Country: None (occurrence: None)
  Receive Date: 20050506
  Receipt Date: 20050426
  Transmission Date: 20051028
  Serious: Yes (Hospitalization)
  Sender: FDA-Public Use
  Company Number: US-MERCK-0504USA04672

PATIENT
  Age: 79 Year
  Sex: Female

DRUGS (4)
  1. VIOXX [Suspect]
     Route: 048
  2. ASPIRIN [Concomitant]
     Route: 048
     Dates: end: 20040601
  3. PREMARIN [Concomitant]
     Route: 065
  4. NADOLOL [Concomitant]
     Route: 065

REACTIONS (2)
  - CARDIAC FAILURE [None]
  - URINARY TRACT INFECTION [None]
